FAERS Safety Report 4454349-7 (Version None)
Quarter: 2004Q3

REPORT INFORMATION
  Report Type: 
  Country: None (occurrence: None)
  Receive Date: 20040920
  Receipt Date: 20040914
  Transmission Date: 20050211
  Serious: Yes (Hospitalization)
  Sender: FDA-Public Use
  Company Number: FR-MERCK-0409FRA00057

PATIENT
  Age: 61 Year
  Sex: Female
  Weight: 78 kg

DRUGS (8)
  1. ACETAMINOPHEN AND CAFFEINE AND PROPOXYPHENE HYDROCHLORIDE [Suspect]
     Indication: LOCALISED OSTEOARTHRITIS
     Route: 048
     Dates: start: 20040608, end: 20040610
  2. BROMAZEPAM [Concomitant]
     Route: 048
     Dates: start: 20030615
  3. FENOFIBRATE [Concomitant]
     Indication: HYPERCHOLESTEROLAEMIA
     Route: 048
  4. FOSINOPRIL SODIUM AND HYDROCHLOROTHIAZIDE [Concomitant]
     Indication: HYPERTENSION
     Route: 048
     Dates: start: 20040315
  5. INSULIN LISPRO [Concomitant]
     Indication: DIABETES MELLITUS INSULIN-DEPENDENT
     Route: 051
  6. RILMENIDINE PHOSPHATE [Concomitant]
     Indication: HYPERTENSION
     Route: 048
     Dates: start: 20040415
  7. VIOXX [Suspect]
     Indication: LOCALISED OSTEOARTHRITIS
     Route: 048
     Dates: start: 20040608, end: 20040610
  8. ZOLPIDEM TARTRATE [Concomitant]
     Route: 048
     Dates: start: 20000615

REACTIONS (5)
  - FEELING DRUNK [None]
  - NAUSEA [None]
  - SOMNOLENCE [None]
  - VERTIGO [None]
  - VOMITING [None]
